FAERS Safety Report 5930002-5 (Version None)
Quarter: 2008Q4

REPORT INFORMATION
  Report Type: 
  Country: None (occurrence: None)
  Receive Date: 20081022
  Receipt Date: 20081014
  Transmission Date: 20090506
  Serious: Yes (Hospitalization)
  Sender: FDA-Public Use
  Company Number: 2008SP017992

PATIENT
  Age: 47 Year
  Sex: Male

DRUGS (2)
  1. PEG-INTRON [Suspect]
     Indication: HEPATITIS C
     Dates: start: 20080725, end: 20080901
  2. RIBAVIRIN [Suspect]
     Indication: HEPATITIS C
     Dosage: PO
     Route: 048
     Dates: start: 20080725, end: 20080901

REACTIONS (12)
  - ABDOMINAL DISTENSION [None]
  - ANGIOPATHY [None]
  - DEHYDRATION [None]
  - DIARRHOEA [None]
  - DYSPHAGIA [None]
  - DYSPNOEA [None]
  - GASTROINTESTINAL BACTERIAL INFECTION [None]
  - PULMONARY OEDEMA [None]
  - SPEECH DISORDER [None]
  - SWELLING [None]
  - UMBILICAL HERNIA [None]
  - VOMITING [None]
